FAERS Safety Report 9744813 (Version 2)
Quarter: 2013Q4

REPORT INFORMATION
  Report Type: Spontaneous
  Country: SI (occurrence: SI)
  Receive Date: 20131211
  Receipt Date: 20131211
  Transmission Date: 20140711
  Serious: Yes (Death)
  Sender: FDA-Public Use
  Company Number: SI-ROCHE-1316136

PATIENT
  Age: 65 Year
  Sex: Male

DRUGS (1)
  1. VEMURAFENIB [Suspect]
     Indication: METASTATIC MALIGNANT MELANOMA
     Route: 065
     Dates: start: 20130531, end: 20130822

REACTIONS (3)
  - Renal failure [Unknown]
  - Hepatic enzyme increased [Unknown]
  - Disease progression [Fatal]
